FAERS Safety Report 6160515-5 (Version None)
Quarter: 2009Q2

REPORT INFORMATION
  Report Type: 
  Country: None (occurrence: None)
  Receive Date: 20090414
  Receipt Date: 20090414
  Transmission Date: 20091009
  Serious: Yes (Hospitalization)
  Sender: FDA-Public Use
  Company Number: None

PATIENT
  Age: 27 Year
  Sex: Male
  Weight: 124.7392 kg

DRUGS (6)
  1. AMRIX [Suspect]
     Indication: SLEEP DISORDER
     Dosage: 15MG QD PO
     Route: 048
     Dates: start: 20090205, end: 20090213
  2. INDERAL [Concomitant]
  3. ZOMIG [Concomitant]
  4. KEPPRA [Concomitant]
  5. ULTRAM [Concomitant]
  6. PREVACID [Concomitant]

REACTIONS (6)
  - CHILLS [None]
  - DIARRHOEA [None]
  - MYALGIA [None]
  - NASOPHARYNGITIS [None]
  - PAIN [None]
  - PYREXIA [None]
